FAERS Safety Report 13303714 (Version 1)
Quarter: 2017Q1

REPORT INFORMATION
  Report Type: Report from Study
  Country: None (occurrence: US)
  Receive Date: 20170307
  Receipt Date: 20170307
  Transmission Date: 20170428
  Serious: Yes (Hospitalization, Other)
  Sender: FDA-Public Use
  Company Number: US-ABBVIE-16K-163-1814711-00

PATIENT
  Age: 66 Year
  Sex: Male
  Weight: 91.71 kg

DRUGS (2)
  1. HUMIRA [Suspect]
     Active Substance: ADALIMUMAB
     Indication: PSORIASIS
     Route: 058
     Dates: start: 2015, end: 201608
  2. HUMIRA [Suspect]
     Active Substance: ADALIMUMAB
     Indication: PSORIATIC ARTHROPATHY
     Route: 058
     Dates: start: 201701

REACTIONS (12)
  - Insomnia [Unknown]
  - Coronary artery occlusion [Recovering/Resolving]
  - Spinal fusion acquired [Unknown]
  - Musculoskeletal pain [Recovering/Resolving]
  - Dyspnoea [Unknown]
  - Pain [Unknown]
  - Psoriasis [Unknown]
  - Calcinosis [Recovering/Resolving]
  - Procedural pain [Recovering/Resolving]
  - Paraesthesia [Recovering/Resolving]
  - Coronary artery bypass [Recovered/Resolved]
  - Neck pain [Unknown]

NARRATIVE: CASE EVENT DATE: 2016
